FAERS Safety Report 9387853 (Version 2)
Quarter: 2013Q3

REPORT INFORMATION
  Report Type: Spontaneous
  Country: US (occurrence: US)
  Receive Date: 20130708
  Receipt Date: 20130719
  Transmission Date: 20140515
  Serious: Yes (Hospitalization, Other)
  Sender: FDA-Public Use
  Company Number: US-BAXTER-2013BAX025941

PATIENT
  Sex: Female
  Weight: 50.45 kg

DRUGS (2)
  1. 0.9% SODIUM CHLORIDE INJECTION [Suspect]
     Indication: HAEMODIALYSIS
     Dates: start: 2009
  2. 0.9% SODIUM CHLORIDE INJECTION [Suspect]
     Indication: HAEMODIALYSIS

REACTIONS (5)
  - Haemorrhage [Unknown]
  - Peritonitis [Recovered/Resolved]
  - Diverticulitis [Recovered/Resolved]
  - Asthenia [Recovering/Resolving]
  - Bedridden [Unknown]
